FAERS Safety Report 8294872 (Version 6)
Quarter: 2013Q1

REPORT INFORMATION
  Report Type: Report from Study
  Country: JP (occurrence: JP)
  Receive Date: 20111216
  Receipt Date: 20130329
  Transmission Date: 20140127
  Serious: Yes (Death, Life-Threatening, Hospitalization, Disabling, Other)
  Sender: FDA-Public Use
  Company Number: JP-BRISTOL-MYERS SQUIBB COMPANY-16265142

PATIENT
  Age: 63 Year
  Sex: Male
  Weight: 86 kg

DRUGS (11)
  1. SPRYCEL [Suspect]
     Indication: CHRONIC MYELOID LEUKAEMIA
     Dosage: 28JAN11:ONG:100 X1 MG/D?28AUG:28NOV11:100 MG ?5 DAYS ON/2 DAYS OFF SCHEDULE.
     Route: 048
     Dates: start: 20110128
  2. CALONAL [Suspect]
     Indication: PYREXIA
     Route: 048
     Dates: start: 20111126, end: 20111129
  3. OMEPRAL [Concomitant]
     Indication: GASTRIC ULCER
     Dosage: 2DEC-5DEC11?15DEC-17DEC11
     Route: 042
     Dates: start: 20111202, end: 20111217
  4. NORADRENALINE [Concomitant]
     Indication: SHOCK
     Dosage: 3DEC-6DEC?15DEC-17DEC11
     Route: 042
     Dates: start: 20111203, end: 20111217
  5. SAXIZON [Concomitant]
     Indication: PYREXIA
     Route: 042
     Dates: start: 20111129, end: 20111201
  6. HANP [Concomitant]
     Indication: CARDIAC FAILURE
     Route: 042
     Dates: start: 20111201, end: 20111217
  7. HUMULIN R [Concomitant]
     Indication: HYPERGLYCAEMIA
     Route: 042
     Dates: start: 20111201, end: 20111217
  8. CALCIUM GLUCONATE [Concomitant]
     Indication: BLOOD CALCIUM DECREASED
     Dates: start: 20111202, end: 20111203
  9. VASOLAN [Concomitant]
     Indication: ARRHYTHMIA
     Route: 042
     Dates: start: 20111202, end: 20111202
  10. NEUART [Concomitant]
     Indication: DISSEMINATED INTRAVASCULAR COAGULATION
     Route: 042
     Dates: start: 20111204, end: 20111204
  11. ALBUMIN 25% [Concomitant]
     Indication: BLOOD ALBUMIN DECREASED
     Route: 042
     Dates: start: 20111202, end: 20111204

REACTIONS (6)
  - Hepatitis acute [Fatal]
  - Renal failure acute [Fatal]
  - Cerebral haemorrhage [Fatal]
  - Sepsis [Recovered/Resolved]
  - Coma hepatic [Not Recovered/Not Resolved]
  - Urticaria [Unknown]
